FAERS Safety Report 5954668-9 (Version None)
Quarter: 2008Q4

REPORT INFORMATION
  Report Type: 
  Country: None (occurrence: None)
  Receive Date: 20081113
  Receipt Date: 20081104
  Transmission Date: 20090506
  Serious: Yes (Disabling)
  Sender: FDA-Public Use
  Company Number: 2008AP003015

PATIENT
  Age: 89 Year
  Sex: Female

DRUGS (8)
  1. ALENDRONATE SODIUM [Suspect]
     Indication: OSTEOPOROSIS
     Dosage: 70 MG; QW; PO
     Route: 048
     Dates: start: 20070627, end: 20080801
  2. CALCIUM CARBONATE [Concomitant]
  3. COLECALCIFEROL (COLECALCIFEROL) [Concomitant]
  4. FUROSEMIDE [Concomitant]
  5. GLYCERYL TRINITRATE (GLYCERYL TRINITRATE) [Concomitant]
  6. LANSOPRAZOLE [Concomitant]
  7. SIMVASTATIN [Concomitant]
  8. VALPROATE SODIUM [Concomitant]

REACTIONS (2)
  - EYE PAIN [None]
  - SCLERITIS [None]
